FAERS Safety Report 18945803 (Version 1)
Quarter: 2021Q1

REPORT INFORMATION
  Report Type: Spontaneous
  Country: US (occurrence: US)
  Receive Date: 20210226
  Receipt Date: 20210226
  Transmission Date: 20210420
  Serious: No
  Sender: FDA-Public Use
  Company Number: US-AIMMUNE THERAPEUTICS, INC.-2020AIMT00386

PATIENT

DRUGS (1)
  1. PALFORZIA [Suspect]
     Active Substance: PEANUT
     Indication: FOOD ALLERGY
     Dosage: 6 MG, 1X/DAY
     Route: 048
     Dates: start: 202010, end: 202010

REACTIONS (4)
  - Sensation of foreign body [Recovering/Resolving]
  - Odynophagia [Recovered/Resolved]
  - Gastrooesophageal reflux disease [Not Recovered/Not Resolved]
  - Eating disorder [Recovering/Resolving]

NARRATIVE: CASE EVENT DATE: 20201005
